FAERS Safety Report 17332785 (Version 2)
Quarter: 2020Q1

REPORT INFORMATION
  Report Type: Spontaneous
  Country: CN (occurrence: CN)
  Receive Date: 20200128
  Receipt Date: 20200205
  Transmission Date: 20200409
  Serious: Yes (Death, Other)
  Sender: FDA-Public Use
  Company Number: CN-ASTRAZENECA-2020SE13306

PATIENT
  Age: 57 Year
  Sex: Female

DRUGS (26)
  1. AVASTIN [Suspect]
     Active Substance: BEVACIZUMAB
     Indication: ANTIANGIOGENIC THERAPY
     Route: 065
  2. CISPLATIN. [Suspect]
     Active Substance: CISPLATIN
     Dosage: 100.0MG UNKNOWN
     Route: 065
     Dates: start: 20180412
  3. OSIMERTINIB. [Suspect]
     Active Substance: OSIMERTINIB
     Indication: LUNG ADENOCARCINOMA
     Route: 048
     Dates: start: 20190404
  4. IRESSA [Suspect]
     Active Substance: GEFITINIB
     Route: 048
     Dates: start: 20161213
  5. ALIMTA [Suspect]
     Active Substance: PEMETREXED DISODIUM
     Dosage: 1.0G UNKNOWN
     Route: 065
     Dates: start: 20180123
  6. OSIMERTINIB. [Suspect]
     Active Substance: OSIMERTINIB
     Indication: LUNG ADENOCARCINOMA
     Route: 048
     Dates: start: 20180716
  7. OSIMERTINIB. [Suspect]
     Active Substance: OSIMERTINIB
     Indication: LUNG ADENOCARCINOMA
     Route: 048
     Dates: start: 20190311
  8. AVASTIN [Suspect]
     Active Substance: BEVACIZUMAB
     Indication: ANTIANGIOGENIC THERAPY
     Dosage: 400.0MG UNKNOWN
     Route: 042
     Dates: start: 20180504
  9. ALIMTA [Suspect]
     Active Substance: PEMETREXED DISODIUM
     Dosage: 1.0G UNKNOWN
     Route: 065
     Dates: start: 20171217
  10. ALIMTA [Suspect]
     Active Substance: PEMETREXED DISODIUM
     Dosage: 1.0G UNKNOWN
     Route: 065
     Dates: start: 20180412
  11. AVASTIN [Suspect]
     Active Substance: BEVACIZUMAB
     Indication: ANTIANGIOGENIC THERAPY
     Dosage: 400.0MG UNKNOWN
     Route: 065
     Dates: start: 20180412
  12. CISPLATIN. [Suspect]
     Active Substance: CISPLATIN
     Dosage: 120.0MG UNKNOWN
     Route: 065
     Dates: start: 20161110
  13. CISPLATIN. [Suspect]
     Active Substance: CISPLATIN
     Dosage: 110.0MG UNKNOWN
     Route: 065
     Dates: start: 20180123
  14. AVASTIN [Suspect]
     Active Substance: BEVACIZUMAB
     Indication: ANTIANGIOGENIC THERAPY
     Route: 065
     Dates: start: 20171217
  15. AVASTIN [Suspect]
     Active Substance: BEVACIZUMAB
     Indication: ANTIANGIOGENIC THERAPY
     Dosage: 400.0MG UNKNOWN
     Route: 065
     Dates: start: 20171220
  16. CRIZOTINIB [Suspect]
     Active Substance: CRIZOTINIB
     Route: 065
     Dates: end: 20181226
  17. ALIMTA [Suspect]
     Active Substance: PEMETREXED DISODIUM
     Dosage: 1.0G UNKNOWN
     Route: 065
     Dates: start: 20171220
  18. OSIMERTINIB. [Suspect]
     Active Substance: OSIMERTINIB
     Indication: LUNG ADENOCARCINOMA
     Route: 048
     Dates: start: 20180817, end: 20181123
  19. AVASTIN [Suspect]
     Active Substance: BEVACIZUMAB
     Indication: ANTIANGIOGENIC THERAPY
     Dosage: 400.0MG UNKNOWN
     Route: 065
     Dates: start: 20180123
  20. GAMMA GLOBULIN [Suspect]
     Active Substance: IMMUNE GLOBULIN NOS
     Route: 065
     Dates: start: 20190311
  21. CRIZOTINIB [Suspect]
     Active Substance: CRIZOTINIB
     Route: 065
     Dates: start: 20181123
  22. ALIMTA [Suspect]
     Active Substance: PEMETREXED DISODIUM
     Dosage: 0.8G UNKNOWN
     Route: 065
     Dates: start: 20161109
  23. ALIMTA [Suspect]
     Active Substance: PEMETREXED DISODIUM
     Dosage: 0.8G UNKNOWN
     Route: 065
     Dates: start: 20181227
  24. CISPLATIN. [Suspect]
     Active Substance: CISPLATIN
     Dosage: 110.0MG UNKNOWN
     Route: 065
     Dates: start: 20171220
  25. CISPLATIN. [Suspect]
     Active Substance: CISPLATIN
     Dosage: 110.0MG UNKNOWN
     Route: 065
     Dates: start: 20181227
  26. TIANQING YITAI [Concomitant]
     Indication: METASTASIS
     Route: 065
     Dates: start: 20161109

REACTIONS (24)
  - Metastases to bone [Unknown]
  - Foaming at mouth [Unknown]
  - Pulmonary mass [Unknown]
  - Pneumonitis [Unknown]
  - Asthenia [Unknown]
  - Constipation [Unknown]
  - Mobility decreased [Unknown]
  - Death [Fatal]
  - Metastases to meninges [Unknown]
  - Cardiac arrest [Unknown]
  - Headache [Unknown]
  - Carcinoembryonic antigen increased [Unknown]
  - Malignant neoplasm progression [Unknown]
  - Drug resistance [Unknown]
  - Respiratory arrest [Unknown]
  - Thrombocytopenia [Unknown]
  - Hypoaesthesia [Unknown]
  - Lung neoplasm malignant [Unknown]
  - Decreased appetite [Unknown]
  - Dry skin [Unknown]
  - Epilepsy [Unknown]
  - Bronchial carcinoma [Unknown]
  - Noninfective encephalitis [Unknown]
  - Vision blurred [Unknown]
